FAERS Safety Report 14228447 (Version 1)
Quarter: 2017Q4

REPORT INFORMATION
  Report Type: Spontaneous
  Country: US (occurrence: None)
  Receive Date: 20171124
  Receipt Date: 20171124
  Transmission Date: 20180321
  Serious: No
  Sender: FDA-Public Use
  Company Number: None

PATIENT
  Age: 78 Year
  Sex: Female

DRUGS (1)
  1. IBRANCE [Suspect]
     Active Substance: PALBOCICLIB
     Indication: BREAST CANCER FEMALE
     Dosage: 21 CAP DAILY 1 A DAY ONE CAP DAILY
     Dates: start: 20170627, end: 20170914

REACTIONS (1)
  - Computerised tomogram liver abnormal [None]

NARRATIVE: CASE EVENT DATE: 20171012
